FAERS Safety Report 5481877-8 (Version None)
Quarter: 2007Q4

REPORT INFORMATION
  Report Type: 
  Country: None (occurrence: None)
  Receive Date: 20071010
  Receipt Date: 20070925
  Transmission Date: 20080405
  Serious: Yes (Other)
  Sender: FDA-Public Use
  Company Number: CO-GENENTECH-249069

PATIENT
  Age: 45 Year
  Sex: Female
  Weight: 89.977 kg

DRUGS (2)
  1. HERCEPTIN [Suspect]
     Indication: BREAST CANCER
     Dosage: 6 MG/KG, Q3W
     Route: 042
     Dates: start: 20070822
  2. PACLITAXEL [Concomitant]
     Indication: BREAST CANCER
     Dates: start: 20070215

REACTIONS (1)
  - EYELID OEDEMA [None]
